FAERS Safety Report 5209819-0 (Version None)
Quarter: 2006Q4

REPORT INFORMATION
  Report Type: 
  Country: None (occurrence: None)
  Receive Date: 20061130
  Receipt Date: 20051017
  Transmission Date: 20070319
  Serious: Yes (Other)
  Sender: FDA-Public Use
  Company Number: 2005115968

PATIENT
  Age: 75 Year
  Sex: Male
  Weight: 90.7194 kg

DRUGS (8)
  1. ZYVOX [Suspect]
     Indication: ARTHRITIS INFECTIVE
     Dosage: 2 IN 1 D, ORAL
     Route: 048
     Dates: start: 20040901, end: 20050101
  2. WARFARIN SODIUM [Concomitant]
  3. LANOXIN [Concomitant]
  4. PROSCAR [Concomitant]
  5. TAMSULOSIN HCL [Concomitant]
  6. PROTONIX [Concomitant]
  7. VITAMIN C (VITAMIN C) [Concomitant]
  8. IRON (IRON) [Concomitant]

REACTIONS (1)
  - OPTIC NEUROPATHY [None]
